FAERS Safety Report 8025850 (Version 4)
Quarter: 2013Q1

REPORT INFORMATION
  Report Type: Spontaneous
  Country: US (occurrence: US)
  Receive Date: 20110708
  Receipt Date: 20130128
  Transmission Date: 20140127
  Serious: Yes (Other)
  Sender: FDA-Public Use
  Company Number: US-JNJFOC-20110700619

PATIENT
  Sex: Female

DRUGS (3)
  1. RISPERDAL [Suspect]
     Indication: SCHIZOPHRENIA
     Route: 048
     Dates: start: 1993
  2. INVEGA SUSTENNA [Suspect]
     Indication: PRODUCT USED FOR UNKNOWN INDICATION
     Route: 030
  3. RISPERDAL CONSTA [Suspect]
     Indication: PRODUCT USED FOR UNKNOWN INDICATION
     Route: 030

REACTIONS (14)
  - Brain injury [Not Recovered/Not Resolved]
  - Convulsion [Unknown]
  - Migraine [Unknown]
  - Cystitis [Unknown]
  - Adverse event [Unknown]
  - Eye haemorrhage [Unknown]
  - Headache [Unknown]
  - Crying [Unknown]
  - Disorientation [Unknown]
  - Fungal infection [Unknown]
  - Stereotypy [Unknown]
  - Malaise [Not Recovered/Not Resolved]
  - Pain [Not Recovered/Not Resolved]
  - Fear [Not Recovered/Not Resolved]
